FAERS Safety Report 9845448 (Version 1)
Quarter: 2014Q1

REPORT INFORMATION
  Report Type: Spontaneous
  Country: US (occurrence: US)
  Receive Date: 20140127
  Receipt Date: 20140127
  Transmission Date: 20141002
  Serious: Yes (Other)
  Sender: FDA-Public Use
  Company Number: US-SA-2014SA007670

PATIENT
  Age: 64 Year
  Sex: Female

DRUGS (10)
  1. AUBAGIO [Suspect]
     Indication: MULTIPLE SCLEROSIS
     Route: 048
     Dates: start: 201307
  2. HYDROCHLOROTHIAZIDE/LOSARTAN POTASSIUM [Concomitant]
  3. CITALOPRAM [Concomitant]
  4. FENOFIBRATE [Concomitant]
  5. COENZYME Q10 [Concomitant]
  6. VITAMIN D3 [Concomitant]
  7. ASPIRIN [Concomitant]
  8. VITAMIN B12 [Concomitant]
  9. GLUCOSAMINE W/CHONDROITIN [Concomitant]
  10. ALL OTHER THERAPEUTIC PRODUCTS [Concomitant]

REACTIONS (4)
  - Cataract [Recovered/Resolved]
  - Sleep disorder [Unknown]
  - Pain in extremity [Unknown]
  - Ear disorder [Unknown]
